FAERS Safety Report 4957912-X (Version None)
Quarter: 2006Q1

REPORT INFORMATION
  Report Type: 
  Country: None (occurrence: None)
  Receive Date: 20060324
  Receipt Date: 20060314
  Transmission Date: 20060701
  Serious: Yes (Hospitalization)
  Sender: FDA-Public Use
  Company Number: 2006033879

PATIENT
  Age: 27 Year
  Sex: Male

DRUGS (2)
  1. BENADRYL [Suspect]
     Indication: COUGH
     Dosage: APPROXIMATELY LESS THAN 10ML
     Dates: start: 20060303, end: 20060303
  2. ACETAMINOPHEN [Concomitant]

REACTIONS (3)
  - ABDOMINAL PAIN UPPER [None]
  - BRADYCARDIA [None]
  - DIZZINESS [None]
